FAERS Safety Report 9061514 (Version 1)
Quarter: 2013Q1

REPORT INFORMATION
  Report Type: Spontaneous
  Country: US (occurrence: None)
  Receive Date: 20130211
  Receipt Date: 20130211
  Transmission Date: 20140127
  Serious: Yes (Hospitalization)
  Sender: FDA-Public Use
  Company Number: None

PATIENT
  Sex: Female
  Weight: 48.6 kg

DRUGS (2)
  1. CARBOPLATIN [Suspect]
  2. PACLITAXEL (TAXOL) [Suspect]
     Route: 042

REACTIONS (6)
  - Fall [None]
  - Neutrophil count decreased [None]
  - Device related infection [None]
  - Cellulitis [None]
  - Wound dehiscence [None]
  - Purulent discharge [None]
